FAERS Safety Report 25468775 (Version 2)
Quarter: 2025Q3

REPORT INFORMATION
  Report Type: Spontaneous
  Country: US (occurrence: US)
  Receive Date: 20250623
  Receipt Date: 20250829
  Transmission Date: 20251020
  Serious: Yes (Hospitalization, Other)
  Sender: SANOFI AVENTIS
  Company Number: US-SA-2025SA175487

PATIENT
  Age: 17 Year
  Sex: Female

DRUGS (1)
  1. REZUROCK [Suspect]
     Active Substance: BELUMOSUDIL
     Indication: Acute myeloid leukaemia (in remission)
     Dosage: 200 MG, QD
     Route: 048
     Dates: start: 20241211

REACTIONS (6)
  - Pneumonia [Unknown]
  - Abdominal operation [Unknown]
  - Dyspepsia [Unknown]
  - Chest pain [Unknown]
  - Paraesthesia [Unknown]
  - Product use in unapproved indication [Unknown]

NARRATIVE: CASE EVENT DATE: 20241211
